FAERS Safety Report 12528238 (Version 1)
Quarter: 2016Q3

REPORT INFORMATION
  Report Type: Report from Study
  Country: GR (occurrence: GR)
  Receive Date: 20160705
  Receipt Date: 20160705
  Transmission Date: 20161109
  Serious: Yes (Hospitalization)
  Sender: FDA-Public Use
  Company Number: GR-JNJFOC-20160626035

PATIENT
  Age: 8 Decade
  Sex: Male

DRUGS (3)
  1. SALOFALK GR [Concomitant]
     Indication: COLITIS ULCERATIVE
     Route: 054
     Dates: start: 20160623
  2. SIMPONI [Suspect]
     Active Substance: GOLIMUMAB
     Indication: COLITIS ULCERATIVE
     Route: 058
     Dates: start: 20160407, end: 20160509
  3. MEDROL [Concomitant]
     Active Substance: METHYLPREDNISOLONE
     Indication: COLITIS ULCERATIVE
     Route: 048
     Dates: start: 20160627

REACTIONS (2)
  - Colitis ulcerative [Recovering/Resolving]
  - Herpes zoster [Recovering/Resolving]

NARRATIVE: CASE EVENT DATE: 201605
